FAERS Safety Report 16367599 (Version 3)
Quarter: 2019Q4

REPORT INFORMATION
  Report Type: Spontaneous
  Country: US (occurrence: US)
  Receive Date: 20190529
  Receipt Date: 20191223
  Transmission Date: 20200122
  Serious: Yes (Other)
  Sender: FDA-Public Use
  Company Number: US-PFIZER INC-2019222988

PATIENT
  Age: 65 Year
  Sex: Male
  Weight: 108.8 kg

DRUGS (1)
  1. XELJANZ XR [Suspect]
     Active Substance: TOFACITINIB CITRATE
     Dosage: 11 MG, DAILY

REACTIONS (7)
  - Chondropathy [Unknown]
  - Peripheral swelling [Unknown]
  - Pain [Unknown]
  - Nasopharyngitis [Unknown]
  - Localised infection [Unknown]
  - Drug dependence [Unknown]
  - Joint range of motion decreased [Unknown]
